FAERS Safety Report 6644191-0 (Version None)
Quarter: 2010Q1

REPORT INFORMATION
  Report Type: 
  Country: None (occurrence: None)
  Receive Date: 20100322
  Receipt Date: 20100312
  Transmission Date: 20100710
  Serious: Yes (Other)
  Sender: FDA-Public Use
  Company Number: NL-ABBOTT-09P-114-0571073-00

PATIENT
  Age: 10 Year
  Sex: Male

DRUGS (3)
  1. DEPAKINE CHRONO SUSPENSION [Suspect]
     Indication: EPILEPSY
     Route: 048
  2. DEPAKINE CHRONO SUSPENSION [Suspect]
     Dosage: MIXTURE
  3. DEPAKINE CHRONO SUSPENSION [Suspect]

REACTIONS (2)
  - CONVULSION [None]
  - PRODUCT SUBSTITUTION ISSUE [None]
